FAERS Safety Report 4638806-6 (Version None)
Quarter: 2005Q2

REPORT INFORMATION
  Report Type: 
  Country: None (occurrence: None)
  Receive Date: 20050419
  Receipt Date: 20050209
  Transmission Date: 20051028
  Serious: Yes (Other)
  Sender: FDA-Public Use
  Company Number: 200510332EU

PATIENT
  Age: 48 Year
  Sex: Male

DRUGS (6)
  1. LANTUS [Suspect]
     Indication: HYPERGLYCAEMIA
     Route: 058
     Dates: start: 20041019, end: 20041120
  2. ACE INHIBITOR NOS [Concomitant]
  3. RAMIPRIL [Concomitant]
  4. HUMALOG PEN [Concomitant]
     Route: 042
  5. PROTAPHAN [Concomitant]
  6. ACTRAPID [Concomitant]

REACTIONS (4)
  - ARTHRALGIA [None]
  - LARYNGEAL OEDEMA [None]
  - MALAISE [None]
  - VERTIGO [None]
